FAERS Safety Report 4505848-0 (Version None)
Quarter: 2004Q4

REPORT INFORMATION
  Report Type: 
  Country: None (occurrence: None)
  Receive Date: 20041018
  Receipt Date: 20040915
  Transmission Date: 20050328
  Serious: No
  Sender: FDA-Public Use
  Company Number: 208715

PATIENT
  Age: 25 Year
  Sex: Female
  Weight: 77 kg

DRUGS (7)
  1. XOLAIR [Suspect]
     Indication: ASTHMA
     Dosage: 300 MG, Q4W, SUBCUTANEOUS
     Route: 058
     Dates: start: 20040427
  2. ORTHO TRI-CYLEN (ETHINYL ESTRADIOL, NORGESTREL) [Concomitant]
  3. ZYRTEC [Concomitant]
  4. NEXIUM [Concomitant]
  5. SINGULAIR [Concomitant]
  6. ADVAIR (SALMETEROL XINAFOATE, FLUTICASONE PROPIONATE) [Concomitant]
  7. ALBUTEROL (ALBUTEROL, ALBUTEROL S ULFATE) [Concomitant]

REACTIONS (1)
  - CONTUSION [None]
